FAERS Safety Report 18694945 (Version 1)
Quarter: 2021Q1

REPORT INFORMATION
  Report Type: Spontaneous
  Country: GB (occurrence: GB)
  Receive Date: 20210104
  Receipt Date: 20210104
  Transmission Date: 20210419
  Serious: Yes (Hospitalization, Other)
  Sender: FDA-Public Use
  Company Number: GB-MYLANLABS-2020M1105385

PATIENT
  Age: 27 Year
  Sex: Female

DRUGS (12)
  1. THIOPENTONE                        /00053401/ [Suspect]
     Active Substance: THIOPENTAL
     Indication: PRODUCT USED FOR UNKNOWN INDICATION
     Dosage: 8 MILLIGRAM/KILOGRAM, QH (UP TO 8 MG/KG/HR)
  2. VALPROIC ACID. [Suspect]
     Active Substance: VALPROIC ACID
     Indication: PRODUCT USED FOR UNKNOWN INDICATION
     Dosage: UNK
  3. LACOSAMIDE. [Suspect]
     Active Substance: LACOSAMIDE
     Indication: PRODUCT USED FOR UNKNOWN INDICATION
     Dosage: UNK,1 DOSE
  4. PROPOFOL. [Suspect]
     Active Substance: PROPOFOL
     Indication: PRODUCT USED FOR UNKNOWN INDICATION
     Dosage: 20 MILLIGRAM, QH, UP TO 20 MG/HR
  5. PHENOBARBITONE                     /00023201/ [Suspect]
     Active Substance: PHENOBARBITAL
     Indication: PRODUCT USED FOR UNKNOWN INDICATION
     Dosage: UNK
  6. METHYLPREDNISOLONE. [Suspect]
     Active Substance: METHYLPREDNISOLONE
     Indication: PRODUCT USED FOR UNKNOWN INDICATION
     Dosage: UNK
     Route: 042
  7. PLASMA [Concomitant]
     Active Substance: HUMAN PLASMA
     Dosage: UNK
  8. LEVETIRACETAM. [Suspect]
     Active Substance: LEVETIRACETAM
     Indication: PRODUCT USED FOR UNKNOWN INDICATION
     Dosage: UNK
  9. MIDAZOLAM. [Suspect]
     Active Substance: MIDAZOLAM
     Indication: STATUS EPILEPTICUS
     Dosage: 24 MILLIGRAM, QH (UP TO 24 MG/HR)
  10. PHENYTOIN. [Suspect]
     Active Substance: PHENYTOIN
     Indication: PRODUCT USED FOR UNKNOWN INDICATION
     Dosage: UNK
  11. KETAMINE [Suspect]
     Active Substance: KETAMINE
     Indication: PRODUCT USED FOR UNKNOWN INDICATION
     Dosage: 1.5 MILLIGRAM/KILOGRAM,STARTED DAY 16 UP TO 1.5 MG/KG WITH INTERMITTENT BOLI UP TO 50 MG
  12. PREDNISOLONE. [Suspect]
     Active Substance: PREDNISOLONE
     Indication: PRODUCT USED FOR UNKNOWN INDICATION
     Dosage: UNK,HIGH DOSE PREDNISOLONE

REACTIONS (12)
  - Hypokalaemia [Unknown]
  - Hypocalcaemia [Unknown]
  - Acute hepatic failure [Unknown]
  - Product use in unapproved indication [Unknown]
  - Intensive care unit acquired weakness [Unknown]
  - Acute kidney injury [Unknown]
  - Blood creatine phosphokinase increased [Unknown]
  - Sepsis [Unknown]
  - Cardiac failure [Unknown]
  - Malabsorption [Unknown]
  - Metabolic acidosis [Unknown]
  - Hypomagnesaemia [Unknown]
